FAERS Safety Report 9412101 (Version 1)
Quarter: 2013Q3

REPORT INFORMATION
  Report Type: Other
  Country: US (occurrence: US)
  Receive Date: 20130722
  Receipt Date: 20130722
  Transmission Date: 20140515
  Serious: Yes (Other)
  Sender: FDA-Public Use
  Company Number: US-BAUSCH-BL-2013-004207

PATIENT
  Age: 37 Year
  Sex: Female

DRUGS (1)
  1. FLUOCINOLONE ACETONIDE INTRAVITREAL IMPLANT (0.5 MG) [Suspect]
     Indication: UVEITIS
     Dosage: IMPLANT; RIGHT EYE

REACTIONS (1)
  - Device dislocation [Recovered/Resolved]
